FAERS Safety Report 14678280 (Version 4)
Quarter: 2018Q3

REPORT INFORMATION
  Report Type: Report from Study
  Country: ES (occurrence: ES)
  Receive Date: 20180326
  Receipt Date: 20180904
  Transmission Date: 20181010
  Serious: Yes (Hospitalization)
  Sender: FDA-Public Use
  Company Number: ES-ACCORD-064794

PATIENT
  Age: 61 Year
  Sex: Male
  Weight: 58 kg

DRUGS (3)
  1. DICLOFENAC [Suspect]
     Active Substance: DICLOFENAC
     Indication: IMMUNOSUPPRESSION
     Dosage: 1000 MG, QD
     Route: 048
     Dates: start: 20170615, end: 20170726
  2. TACROLIMUS. [Suspect]
     Active Substance: TACROLIMUS
     Indication: IMMUNOSUPPRESSION
     Dosage: 1000 MG, QD
     Dates: start: 2017, end: 2017
  3. MYFENAX [Suspect]
     Active Substance: MYCOPHENOLATE MOFETIL
     Indication: IMMUNOSUPPRESSION
     Dosage: 1000 MILLIGRAM DAILY; STRENGTH: 250 MG
     Route: 048
     Dates: start: 20170615, end: 20170726

REACTIONS (1)
  - Epilepsy [Recovered/Resolved]

NARRATIVE: CASE EVENT DATE: 20170707
